FAERS Safety Report 8956551 (Version 1)
Quarter: 2012Q4

REPORT INFORMATION
  Report Type: 
  Country: JP (occurrence: JP)
  Receive Date: 20121210
  Receipt Date: 20121210
  Transmission Date: 20130627
  Serious: Yes (Death)
  Sender: FDA-Public Use
  Company Number: JP-009507513-2012SP019312

PATIENT
  Age: 72 Year
  Sex: Female
  Weight: 37 kg

DRUGS (12)
  1. TEMOZOLOMIDE [Suspect]
     Indication: GLIOBLASTOMA MULTIFORME
     Dosage: 150 mg/m2, QD
     Route: 041
     Dates: start: 20110425, end: 20110429
  2. TEMOZOLOMIDE [Suspect]
     Dosage: 150 mg/m2, QD
     Route: 041
     Dates: start: 20110530, end: 20110623
  3. TEMODAL [Suspect]
     Indication: GLIOBLASTOMA MULTIFORME
     Dosage: UNK
     Route: 048
     Dates: start: 20110204, end: 20110316
  4. ISOCORONAL R [Concomitant]
     Route: 048
  5. SUPRAN (DILAZEP HYDROCHLORIDE) [Concomitant]
     Route: 048
  6. OLMETEC [Concomitant]
     Route: 048
  7. AMLODIPINE BESYLATE [Concomitant]
     Route: 048
  8. RENIVEZE [Concomitant]
     Route: 048
  9. BAYASPIRIN [Concomitant]
     Route: 048
  10. TAKEPRON [Concomitant]
     Route: 048
  11. HYSERENIN TABLETS 100 MG [Concomitant]
     Route: 048
     Dates: start: 20110117
  12. DECADRON [Concomitant]
     Route: 048
     Dates: start: 20110201

REACTIONS (2)
  - Disease progression [Fatal]
  - Platelet count decreased [Recovered/Resolved]
